FAERS Safety Report 9495298 (Version 1)
Quarter: 2013Q3

REPORT INFORMATION
  Report Type: Spontaneous
  Country: CA (occurrence: None)
  Receive Date: 20130828
  Receipt Date: 20130828
  Transmission Date: 20140515
  Serious: Yes (Other)
  Sender: FDA-Public Use
  Company Number: JPI-P-034813

PATIENT
  Age: 64 Year
  Sex: Female

DRUGS (6)
  1. XYREM (500 MILLIGRAM/ MILLILITERS, SOLUTION) (SODIUM OXYBATE) [Suspect]
     Indication: CATAPLEXY
     Route: 048
     Dates: start: 20030807
  2. LEVOTHYROXINE SODIUM [Concomitant]
  3. PERINDOPRIL [Concomitant]
  4. ATORVASTATIN CALCIUM [Concomitant]
  5. ACETYLSALICYLIC ACID [Concomitant]
  6. DEXTROAMPHETAMINE [Concomitant]

REACTIONS (3)
  - Coronary arterial stent insertion [None]
  - Nephrolithiasis [None]
  - Urinary tract infection [None]
